FAERS Safety Report 18358548 (Version 2)
Quarter: 2020Q4

REPORT INFORMATION
  Report Type: Spontaneous
  Country: US (occurrence: US)
  Receive Date: 20201008
  Receipt Date: 20201019
  Transmission Date: 20210114
  Serious: No
  Sender: FDA-Public Use
  Company Number: US-BIOGEN-2020BI00931150

PATIENT
  Sex: Female

DRUGS (1)
  1. VUMERITY [Suspect]
     Active Substance: DIROXIMEL FUMARATE
     Indication: MULTIPLE SCLEROSIS
     Route: 065

REACTIONS (6)
  - Bladder disorder [Unknown]
  - Gastric disorder [Unknown]
  - Ulcer [Unknown]
  - Memory impairment [Unknown]
  - Cardiac disorder [Unknown]
  - Dyspepsia [Unknown]
